FAERS Safety Report 8384551-3 (Version None)
Quarter: 2012Q2

REPORT INFORMATION
  Report Type: 
  Country: None (occurrence: None)
  Receive Date: 20120524
  Receipt Date: 20120516
  Transmission Date: 20120825
  Serious: Yes (Other)
  Sender: FDA-Public Use
  Company Number: US-JNJFOC-20120514545

PATIENT
  Sex: Female

DRUGS (8)
  1. EVISTA [Concomitant]
  2. XANAX [Concomitant]
  3. PLAVIX [Concomitant]
  4. LORTAB [Concomitant]
  5. XARELTO [Suspect]
     Indication: HIP ARTHROPLASTY
     Route: 048
     Dates: start: 20120425, end: 20120507
  6. XARELTO [Suspect]
     Indication: THROMBOSIS PROPHYLAXIS
     Route: 048
     Dates: start: 20120425, end: 20120507
  7. NEXIUM [Concomitant]
  8. ZOLOFT [Concomitant]

REACTIONS (1)
  - DEEP VEIN THROMBOSIS [None]
